FAERS Safety Report 10028032 (Version 3)
Quarter: 2014Q2

REPORT INFORMATION
  Report Type: Spontaneous
  Country: US (occurrence: US)
  Receive Date: 20140321
  Receipt Date: 20140411
  Transmission Date: 20141212
  Serious: Yes (Hospitalization)
  Sender: FDA-Public Use
  Company Number: US-BAXTER-2014BAX014194

PATIENT
  Sex: Female

DRUGS (1)
  1. DIANEAL LOW CALCIUM [Suspect]
     Indication: PERITONEAL DIALYSIS
     Route: 033
     Dates: start: 201004

REACTIONS (5)
  - Heart rate increased [Recovered/Resolved]
  - Neuropathy peripheral [Recovering/Resolving]
  - Urinary tract infection [Recovered/Resolved]
  - Cerebrovascular accident [Recovering/Resolving]
  - Hypotension [Recovering/Resolving]
